FAERS Safety Report 9071969 (Version 1)
Quarter: 2013Q1

REPORT INFORMATION
  Report Type: Report from Study
  Country: GB (occurrence: GB)
  Receive Date: 20130129
  Receipt Date: 20130129
  Transmission Date: 20140127
  Serious: Yes (Hospitalization)
  Sender: FDA-Public Use
  Company Number: GB-ROCHE-1184857

PATIENT
  Age: 65 None
  Sex: Male
  Weight: 54.5 kg

DRUGS (4)
  1. BEVACIZUMAB [Suspect]
     Indication: GASTRIC CANCER
     Dosage: LAST DOSE PRIOR TO SAE: 04/DEC/2012
     Route: 042
     Dates: start: 20120529
  2. CAPECITABINE [Suspect]
     Indication: GASTRIC CANCER
     Dosage: LAST DOSE PRIOR TO SAE: 04/DEC/2012
     Route: 048
     Dates: start: 20120529, end: 20121219
  3. EPIRUBICIN [Suspect]
     Indication: GASTRIC CANCER
     Dosage: LAST DOSE PRIOR TO SAE: 04/DEC/2012
     Route: 042
     Dates: start: 20120529, end: 20121219
  4. CISPLATIN [Suspect]
     Indication: GASTRIC CANCER
     Dosage: LAST DOSE PRIOR TO SAE: 04/DEC/2012
     Route: 042
     Dates: start: 20120529, end: 20121219

REACTIONS (1)
  - Mucosal inflammation [Recovered/Resolved]
